FAERS Safety Report 5664801-4 (Version None)
Quarter: 2008Q1

REPORT INFORMATION
  Report Type: 
  Country: None (occurrence: None)
  Receive Date: 20080312
  Receipt Date: 20080305
  Transmission Date: 20080703
  Serious: Yes (Life-Threatening, Hospitalization)
  Sender: FDA-Public Use
  Company Number: 163-21880-07100818

PATIENT
  Age: 59 Year
  Sex: Female

DRUGS (3)
  1. REVLIMID [Suspect]
     Indication: MULTIPLE MYELOMA
     Dosage: 25 MG, DAILY FOR 21 DAYS, ORAL
     Route: 048
     Dates: start: 20071016, end: 20080222
  2. DARBEPOETIN [Concomitant]
  3. ZOMETA [Concomitant]

REACTIONS (3)
  - DEEP VEIN THROMBOSIS [None]
  - LIVER FUNCTION TEST ABNORMAL [None]
  - PULMONARY EMBOLISM [None]
